FAERS Safety Report 9709551 (Version 1)
Quarter: 2013Q4

REPORT INFORMATION
  Report Type: Spontaneous
  Country: US (occurrence: US)
  Receive Date: 20131126
  Receipt Date: 20131126
  Transmission Date: 20140711
  Serious: No
  Sender: FDA-Public Use
  Company Number: US-BIOGENIDEC-2013BI111646

PATIENT
  Sex: Female

DRUGS (1)
  1. TYSABRI [Suspect]
     Indication: MULTIPLE SCLEROSIS
     Route: 042
     Dates: start: 20080819

REACTIONS (4)
  - Tooth disorder [Recovered/Resolved]
  - Loose tooth [Recovered/Resolved]
  - Malaise [Not Recovered/Not Resolved]
  - Oral infection [Not Recovered/Not Resolved]
